FAERS Safety Report 9079487 (Version 3)
Quarter: 2013Q1

REPORT INFORMATION
  Report Type: Spontaneous
  Country: IL (occurrence: IL)
  Receive Date: 20130215
  Receipt Date: 20130327
  Transmission Date: 20140127
  Serious: Yes (Death, Hospitalization, Other)
  Sender: FDA-Public Use
  Company Number: IL-ASTRAZENECA-2013SE09878

PATIENT
  Age: 6 Month
  Sex: Female
  Weight: 5.6 kg

DRUGS (5)
  1. SYNAGIS [Suspect]
     Indication: ANTIVIRAL PROPHYLAXIS
     Route: 030
     Dates: start: 20121112, end: 20121112
  2. SYNAGIS [Suspect]
     Indication: ANTIVIRAL PROPHYLAXIS
     Route: 030
     Dates: start: 20121213, end: 20121213
  3. SYNAGIS [Suspect]
     Indication: ANTIVIRAL PROPHYLAXIS
     Route: 030
     Dates: start: 20130110
  4. FUSID [Concomitant]
     Indication: HEART DISEASE CONGENITAL
  5. ALDACTONE [Concomitant]
     Indication: HEART DISEASE CONGENITAL

REACTIONS (5)
  - Respiratory syncytial virus infection [Fatal]
  - Multi-organ failure [Fatal]
  - Urinary retention [Unknown]
  - Heart disease congenital [Unknown]
  - Respiratory failure [Unknown]
